FAERS Safety Report 11214772 (Version 1)
Quarter: 2015Q2

REPORT INFORMATION
  Report Type: Spontaneous
  Country: GB (occurrence: GB)
  Receive Date: 20150624
  Receipt Date: 20150624
  Transmission Date: 20150821
  Serious: Yes (Other)
  Sender: FDA-Public Use
  Company Number: GB-ALEMBIC PHARMACEUTICALS LIMITED-2015SCAL000313

PATIENT

DRUGS (1)
  1. FLUOXETINE HYDROCHLORIDE. [Suspect]
     Active Substance: FLUOXETINE HYDROCHLORIDE
     Indication: PRODUCT USED FOR UNKNOWN INDICATION
     Dosage: UNK

REACTIONS (8)
  - Mental retardation [Unknown]
  - Microcephaly [Unknown]
  - Drug withdrawal syndrome neonatal [Unknown]
  - Exposure during breast feeding [Unknown]
  - Hypertonia neonatal [Unknown]
  - Feeling jittery [Unknown]
  - Eye movement disorder [Unknown]
  - Foetal exposure during pregnancy [Unknown]
